FAERS Safety Report 8849758 (Version 2)
Quarter: 2012Q4

REPORT INFORMATION
  Report Type: 
  Country: US (occurrence: US)
  Receive Date: 20121019
  Receipt Date: 20121019
  Transmission Date: 20130627
  Serious: No
  Sender: FDA-Public Use
  Company Number: US-JNJFOC-20121007659

PATIENT
  Age: 75 None
  Sex: Female
  Weight: 63.5 kg

DRUGS (8)
  1. LEVAQUIN [Suspect]
     Indication: MULTIPLE ALLERGIES
     Route: 065
     Dates: end: 2012
  2. LYRICA [Suspect]
     Indication: NEUROPATHY PERIPHERAL
     Route: 065
  3. LYRICA [Suspect]
     Indication: FIBROMYALGIA
     Route: 065
  4. TOVIAZ [Suspect]
     Indication: HYPERTONIC BLADDER
     Route: 065
  5. LIPITOR [Suspect]
     Indication: BLOOD CHOLESTEROL INCREASED
     Route: 065
  6. CELEBREX [Suspect]
     Indication: ARTHRITIS
     Route: 065
  7. TOPROL [Concomitant]
     Indication: HYPERTENSION
     Route: 065
  8. LEXAPRO [Concomitant]
     Route: 065

REACTIONS (3)
  - Cystitis [Recovered/Resolved]
  - Nausea [Not Recovered/Not Resolved]
  - Malaise [Recovered/Resolved]
